FAERS Safety Report 4492576-3 (Version None)
Quarter: 2004Q4

REPORT INFORMATION
  Report Type: 
  Country: None (occurrence: None)
  Receive Date: 20041102
  Receipt Date: 20041102
  Transmission Date: 20050328
  Serious: Yes (Other)
  Sender: FDA-Public Use
  Company Number: None

PATIENT
  Age: 81 Year
  Sex: Female

DRUGS (2)
  1. DOBUTAMINE [Suspect]
     Indication: CARDIAC STRESS TEST
     Dosage: 10MCG/KG/MINUTE EVERY MINUTE
     Dates: start: 20041022
  2. DOBUTAMINE [Suspect]
     Indication: CARDIAC STRESS TEST
     Dosage: 10MCG/KG/MINUTE EVERY MINUTE
     Dates: start: 20041022

REACTIONS (2)
  - DRUG INEFFECTIVE [None]
  - PHARMACEUTICAL PRODUCT COMPLAINT [None]
